FAERS Safety Report 19264631 (Version 1)
Quarter: 2021Q2

REPORT INFORMATION
  Report Type: Spontaneous
  Country: US (occurrence: US)
  Receive Date: 20210517
  Receipt Date: 20210517
  Transmission Date: 20210717
  Serious: Yes (Hospitalization)
  Sender: FDA-Public Use
  Company Number: None

PATIENT
  Age: 61 Year
  Sex: Female

DRUGS (17)
  1. MYCOPHENOLIC [Concomitant]
     Active Substance: MYCOPHENOLIC ACID
  2. FLUOXETINE [Concomitant]
     Active Substance: FLUOXETINE HYDROCHLORIDE
  3. MAGNESIUM [Concomitant]
     Active Substance: MAGNESIUM
  4. AZITHROMYCIN ANHYDROUS. [Concomitant]
     Active Substance: AZITHROMYCIN ANHYDROUS
  5. ITRACONAZOLE. [Concomitant]
     Active Substance: ITRACONAZOLE
  6. PRAVASTATIN. [Concomitant]
     Active Substance: PRAVASTATIN
  7. METOPROLOL. [Concomitant]
     Active Substance: METOPROLOL
  8. JANUMET [Concomitant]
     Active Substance: METFORMIN HYDROCHLORIDE\SITAGLIPTIN PHOSPHATE
  9. BACTRIM [Concomitant]
     Active Substance: SULFAMETHOXAZOLE\TRIMETHOPRIM
  10. TACROLIMUS. [Suspect]
     Active Substance: TACROLIMUS
     Indication: LUNG TRANSPLANT
     Route: 048
     Dates: start: 20200624
  11. PREDNISONE. [Concomitant]
     Active Substance: PREDNISONE
  12. MYCOPHENOLATE [Concomitant]
     Active Substance: MYCOPHENOLIC ACID
  13. CALCIUM [Concomitant]
     Active Substance: CALCIUM
  14. ACYCLOVIR. [Concomitant]
     Active Substance: ACYCLOVIR
  15. FAMOTIDINE. [Concomitant]
     Active Substance: FAMOTIDINE
  16. GABAPENTIN. [Concomitant]
     Active Substance: GABAPENTIN
  17. PRENATAL [Concomitant]
     Active Substance: VITAMINS

REACTIONS (1)
  - COVID-19 pneumonia [None]

NARRATIVE: CASE EVENT DATE: 20210505
